FAERS Safety Report 8611734-7 (Version None)
Quarter: 2012Q3

REPORT INFORMATION
  Report Type: 
  Country: None (occurrence: None)
  Receive Date: 20120822
  Receipt Date: 20120813
  Transmission Date: 20120928
  Serious: Yes (Hospitalization)
  Sender: FDA-Public Use
  Company Number: US-ASTRAZENECA-2010SE05616

PATIENT
  Age: 91 Year
  Sex: Female
  Weight: 72.1 kg

DRUGS (1)
  1. NEXIUM [Suspect]
     Indication: GASTROOESOPHAGEAL REFLUX DISEASE
     Route: 048
     Dates: start: 20091001

REACTIONS (9)
  - CHOKING [None]
  - DRUG INEFFECTIVE [None]
  - GASTROOESOPHAGEAL REFLUX DISEASE [None]
  - COUGH [None]
  - PNEUMONIA [None]
  - DRUG DOSE OMISSION [None]
  - CARDIAC FAILURE CONGESTIVE [None]
  - DYSPHAGIA [None]
  - NAUSEA [None]
